FAERS Safety Report 8342706-8 (Version None)
Quarter: 2012Q2

REPORT INFORMATION
  Report Type: 
  Country: None (occurrence: None)
  Receive Date: 20120503
  Receipt Date: 20120424
  Transmission Date: 20120825
  Serious: Yes (Death)
  Sender: FDA-Public Use
  Company Number: CIP-2012-00121

PATIENT

DRUGS (2)
  1. CAPECITABINE [Suspect]
     Indication: METASTATIC NEOPLASM
     Dosage: 3,500 MG/M2/DAY; (DAY 1-7, TWICE A DAY, EVERY TWO WEEKS),ORAL
     Route: 048
  2. IRINOTECAN HCL [Suspect]
     Indication: METASTATIC NEOPLASM
     Dosage: 180 MG/M2 (DAY 1 OVER 90 MINUTES, EVERY TWO WEEKS),INTRAVENOUS
     Route: 042

REACTIONS (2)
  - FEBRILE NEUTROPENIA [None]
  - DIARRHOEA [None]
